FAERS Safety Report 21961722 (Version 1)
Quarter: 2023Q1

REPORT INFORMATION
  Report Type: Spontaneous
  Country: US (occurrence: None)
  Receive Date: 20230204
  Receipt Date: 20230204
  Transmission Date: 20230418
  Serious: No
  Sender: FDA-Public Use
  Company Number: None

PATIENT
  Age: 37 Year
  Sex: Male
  Weight: 66.6 kg

DRUGS (1)
  1. NAPHAZOLINE HYDROCHLORIDE [Suspect]
     Active Substance: NAPHAZOLINE HYDROCHLORIDE
     Indication: Dry eye
     Dosage: FREQUENCY : AS NEEDED;?
     Route: 047
     Dates: start: 20230101, end: 20230125

REACTIONS (4)
  - Eye irritation [None]
  - Foreign body sensation in eyes [None]
  - Instillation site reaction [None]
  - Recalled product administered [None]

NARRATIVE: CASE EVENT DATE: 20230101
